FAERS Safety Report 5804326-6 (Version None)
Quarter: 2008Q3

REPORT INFORMATION
  Report Type: 
  Country: None (occurrence: None)
  Receive Date: 20080709
  Receipt Date: 20080709
  Transmission Date: 20090109
  Serious: Yes (Life-Threatening, Hospitalization)
  Sender: FDA-Public Use
  Company Number: None

PATIENT
  Sex: Female
  Weight: 81.6475 kg

DRUGS (5)
  1. HEPARIN [Suspect]
     Indication: INTRAVENOUS CATHETER MANAGEMENT
     Dosage: 2 1/2 - 5ML DAILY  1-2X DAILY  PICLINE
     Dates: start: 20080219, end: 20080330
  2. HEPARIN [Suspect]
  3. HEPARIN [Suspect]
  4. PICCLINE PLACEMENT [Concomitant]
  5. CHEMO TREATMENTS [Concomitant]

REACTIONS (5)
  - CHEST PAIN [None]
  - DEEP VEIN THROMBOSIS [None]
  - HYPOTHYROIDISM [None]
  - INFLAMMATION [None]
  - LOCAL SWELLING [None]
